FAERS Safety Report 5815245-3 (Version None)
Quarter: 2008Q3

REPORT INFORMATION
  Report Type: 
  Country: None (occurrence: None)
  Receive Date: 20080718
  Receipt Date: 20080711
  Transmission Date: 20090109
  Serious: Yes (Hospitalization, Disabling, Other)
  Sender: FDA-Public Use
  Company Number: US-BOEHRINGER INGELHEIM GMBH, GERMANY-2008-BP-10986BP

PATIENT
  Sex: Female

DRUGS (13)
  1. MIRAPEX [Suspect]
     Indication: RESTLESS LEGS SYNDROME
     Route: 048
     Dates: start: 19970101, end: 20071201
  2. MIRAPEX [Suspect]
     Route: 048
     Dates: start: 20080101
  3. PREDNISONE TAB [Concomitant]
  4. SYNTHROID [Concomitant]
  5. PLAQUENILL [Concomitant]
  6. PROVIGIL [Concomitant]
  7. EFFEXOR [Concomitant]
  8. HORMONE PATCH [Concomitant]
  9. PYRIDOXINE HCL [Concomitant]
  10. AMARYL [Concomitant]
  11. LUNESTA [Concomitant]
  12. MULTI-VITAMINS [Concomitant]
  13. OXYCODONE HCL [Concomitant]

REACTIONS (12)
  - ADDISON'S DISEASE [None]
  - BACK PAIN [None]
  - BLOOD CALCIUM DECREASED [None]
  - BLOOD IRON DECREASED [None]
  - DIABETIC NEUROPATHY [None]
  - FALL [None]
  - FIBROMYALGIA [None]
  - HEAD INJURY [None]
  - HEMIPARESIS [None]
  - SLEEP APNOEA SYNDROME [None]
  - SOMNOLENCE [None]
  - SYSTEMIC LUPUS ERYTHEMATOSUS [None]
